FAERS Safety Report 8907666 (Version 1)
Quarter: 2012Q4

REPORT INFORMATION
  Report Type: 
  Country: US (occurrence: US)
  Receive Date: 20121113
  Receipt Date: 20121113
  Transmission Date: 20130627
  Serious: No
  Sender: FDA-Public Use
  Company Number: US-AMGEN-USASP2012010416

PATIENT
  Age: 55 Year
  Sex: Male
  Weight: 90.7 kg

DRUGS (6)
  1. ENBREL [Suspect]
     Indication: PRODUCT USED FOR UNKNOWN INDICATION
     Dosage: 50 mg, qwk
     Route: 058
  2. COLCHICINE [Concomitant]
     Dosage: 0.6 mg, UNK
  3. ALLOPURINOL [Concomitant]
     Dosage: 300 mg, UNK
  4. AMITRIPTYLIN [Concomitant]
     Dosage: 150 mg, UNK
  5. FOLIC ACID [Concomitant]
     Dosage: UNK
  6. PERCOCET                           /00867901/ [Concomitant]
     Dosage: UNK

REACTIONS (1)
  - Sinusitis [Unknown]
